FAERS Safety Report 10993436 (Version 1)
Quarter: 2015Q2

REPORT INFORMATION
  Report Type: Spontaneous
  Country: US (occurrence: None)
  Receive Date: 20150406
  Receipt Date: 20150406
  Transmission Date: 20150821
  Serious: Yes (Disabling, Other)
  Sender: FDA-Public Use
  Company Number: None

PATIENT
  Age: 73 Year
  Sex: Male
  Weight: 77.11 kg

DRUGS (32)
  1. K2 [Concomitant]
     Active Substance: JWH-018
  2. PROBIOTIC [Concomitant]
     Active Substance: PROBIOTICS NOS
  3. L LYSINE [Concomitant]
  4. COQ10 [Concomitant]
     Active Substance: UBIDECARENONE
  5. GINGER ROOT [Concomitant]
  6. HAWTHORNE [Concomitant]
  7. LIOTHYRONINE [Concomitant]
     Active Substance: LIOTHYRONINE
  8. ELEMENTAL MAGNESIUM [Concomitant]
  9. TURMERIC [Concomitant]
     Active Substance: TURMERIC
  10. ACETYL L CARNITINE [Concomitant]
  11. PAPAYA ENZYME [Concomitant]
  12. NAC [Concomitant]
  13. MILK THISTLE [Concomitant]
     Active Substance: MILK THISTLE
  14. D3 [Concomitant]
     Active Substance: 25-HYDROXYCHOLECALCIFEROL, 5-TRANS-
  15. BIOTIN [Concomitant]
     Active Substance: BIOTIN
  16. GRAPE SEED EXTRACT [Concomitant]
     Active Substance: GRAPE SEED EXTRACT
  17. GINKO BILOBA [Concomitant]
     Active Substance: GINKGO
  18. CIPROFLOXACIN. [Suspect]
     Active Substance: CIPROFLOXACIN
     Indication: PROSTATE INFECTION
     Dosage: 2 PILLS
     Route: 048
  19. LEVOTHYROXIN [Concomitant]
     Active Substance: LEVOTHYROXINE
  20. URINIZINC [Concomitant]
  21. OCUVITE [Concomitant]
     Active Substance: VITAMINS
  22. VIT. C [Concomitant]
  23. FISH OIL [Concomitant]
     Active Substance: FISH OIL
  24. BETAINE [Concomitant]
     Active Substance: BETAINE
  25. VITAMIN B12 [Concomitant]
     Active Substance: CYANOCOBALAMIN
  26. OSTEO BI-FLEX [Concomitant]
     Active Substance: CHONDROITIN SULFATE A\GLUCOSAMINE
  27. ASTAXANTHIN [Concomitant]
  28. L ARGININE [Concomitant]
     Active Substance: ARGININE
  29. ALPHA LIPOIC ACID [Concomitant]
     Active Substance: .ALPHA.-LIPOIC ACID
  30. LYCOPENE [Concomitant]
     Active Substance: LYCOPENE
  31. QUERCETIN [Concomitant]
     Active Substance: QUERCETIN
  32. GARLIC. [Concomitant]
     Active Substance: GARLIC

REACTIONS (8)
  - Tendonitis [None]
  - Musculoskeletal pain [None]
  - Eye pain [None]
  - Rotator cuff syndrome [None]
  - Photopsia [None]
  - Vitreous floaters [None]
  - Pain in extremity [None]
  - Arthralgia [None]
